FAERS Safety Report 8285232-7 (Version None)
Quarter: 2012Q2

REPORT INFORMATION
  Report Type: 
  Country: None (occurrence: None)
  Receive Date: 20120413
  Receipt Date: 20120109
  Transmission Date: 20120825
  Serious: No
  Sender: FDA-Public Use
  Company Number: US-ASTRAZENECA-2012SE01798

PATIENT
  Age: 49 Year
  Sex: Female

DRUGS (3)
  1. BENTYL [Concomitant]
  2. CALCIUM CARBONATE [Concomitant]
  3. NEXIUM [Suspect]
     Route: 048

REACTIONS (5)
  - GASTROOESOPHAGEAL REFLUX DISEASE [None]
  - DRUG DOSE OMISSION [None]
  - ABDOMINAL DISCOMFORT [None]
  - DYSPEPSIA [None]
  - OESOPHAGITIS [None]
